FAERS Safety Report 20394708 (Version 3)
Quarter: 2022Q1

REPORT INFORMATION
  Report Type: Spontaneous
  Country: US (occurrence: US)
  Receive Date: 20220129
  Receipt Date: 20220215
  Transmission Date: 20220424
  Serious: No
  Sender: FDA-Public Use
  Company Number: US-Blueprint Medicines Corporation-SP-US-2022-000208

PATIENT
  Age: 55 Year
  Sex: Male

DRUGS (2)
  1. AYVAKIT [Suspect]
     Active Substance: AVAPRITINIB
     Indication: Systemic mastocytosis
     Route: 048
     Dates: start: 20220111
  2. AYVAKIT [Suspect]
     Active Substance: AVAPRITINIB
     Route: 048
     Dates: start: 20220111

REACTIONS (8)
  - Pain [Unknown]
  - Feeling cold [Unknown]
  - Fatigue [Unknown]
  - Nausea [Unknown]
  - Lacrimation increased [Unknown]
  - Swelling face [Unknown]
  - Peripheral swelling [Unknown]
  - Diarrhoea [Unknown]
